FAERS Safety Report 23024116 (Version 2)
Quarter: 2024Q3

REPORT INFORMATION
  Report Type: Spontaneous
  Country: JP (occurrence: JP)
  Receive Date: 20231004
  Receipt Date: 20240707
  Transmission Date: 20241017
  Serious: Yes (Other)
  Sender: NOVARTIS
  Company Number: JP-002147023-NVSJ2023JP014308

PATIENT
  Age: 36 Year
  Sex: Female

DRUGS (9)
  1. LUTATHERA [Suspect]
     Active Substance: LUTETIUM OXODOTREOTIDE LU-177
     Indication: Neuroblastoma
     Dosage: 7.4 GBQ
     Route: 042
     Dates: start: 20230126
  2. LUTATHERA [Suspect]
     Active Substance: LUTETIUM OXODOTREOTIDE LU-177
     Dosage: UNK
     Route: 042
  3. LUTATHERA [Suspect]
     Active Substance: LUTETIUM OXODOTREOTIDE LU-177
     Dosage: UNK
     Route: 042
  4. LUTATHERA [Suspect]
     Active Substance: LUTETIUM OXODOTREOTIDE LU-177
     Dosage: UNK
     Route: 042
     Dates: start: 20230727, end: 20230727
  5. ARGININE\LYSINE [Suspect]
     Active Substance: ARGININE\LYSINE
     Indication: Product used for unknown indication
     Dosage: 1000 ML
     Route: 042
     Dates: start: 20230126
  6. ARGININE\LYSINE [Suspect]
     Active Substance: ARGININE\LYSINE
     Dosage: UNK
     Route: 042
  7. ARGININE\LYSINE [Suspect]
     Active Substance: ARGININE\LYSINE
     Dosage: UNK
     Route: 042
  8. ARGININE\LYSINE [Suspect]
     Active Substance: ARGININE\LYSINE
     Dosage: UNK
     Route: 042
     Dates: start: 20230727, end: 20230727
  9. KYTRIL [Concomitant]
     Active Substance: GRANISETRON HYDROCHLORIDE
     Indication: Product used for unknown indication
     Dosage: UNK
     Route: 042
     Dates: start: 20230126

REACTIONS (4)
  - Platelet count decreased [Not Recovered/Not Resolved]
  - Metastases to bone [Unknown]
  - Malignant neoplasm progression [Unknown]
  - Off label use [Unknown]

NARRATIVE: CASE EVENT DATE: 20230601
